FAERS Safety Report 11272844 (Version 1)
Quarter: 2015Q3

REPORT INFORMATION
  Report Type: Spontaneous
  Country: US (occurrence: None)
  Receive Date: 20150713
  Receipt Date: 20150713
  Transmission Date: 20151125
  Serious: No
  Sender: FDA-Public Use
  Company Number: 2014-00022

PATIENT
  Age: 65 Year
  Sex: Male

DRUGS (4)
  1. ZICAM COLD REMEDY RAPIDMELTS [Suspect]
     Active Substance: ZINC ACETATE ANHYDROUS\ZINC GLUCONATE
     Indication: NASOPHARYNGITIS
     Dosage: 1 RAPIDMELT 4-5 TIMES/DAY
     Route: 048
     Dates: start: 20140121, end: 20140129
  2. ZICAM COLD REMEDY RAPIDMELTS [Suspect]
     Active Substance: ZINC ACETATE ANHYDROUS\ZINC GLUCONATE
     Indication: INFLUENZA
     Dosage: 1 RAPIDMELT 4-5 TIMES/DAY
     Route: 048
     Dates: start: 20140121, end: 20140129
  3. MULTIVITAMIN [Concomitant]
     Active Substance: VITAMINS
  4. ASPIRIN. [Concomitant]
     Active Substance: ASPIRIN

REACTIONS (2)
  - Dysgeusia [None]
  - Ageusia [None]

NARRATIVE: CASE EVENT DATE: 20140128
